FAERS Safety Report 9128985 (Version 1)
Quarter: 2013Q1

REPORT INFORMATION
  Report Type: Report from Study
  Country: CA (occurrence: CA)
  Receive Date: 20130228
  Receipt Date: 20130228
  Transmission Date: 20140127
  Serious: Yes (Other)
  Sender: FDA-Public Use
  Company Number: CA-ROCHE-1196172

PATIENT
  Age: 69 Year
  Sex: 0

DRUGS (1)
  1. XELODA [Suspect]
     Indication: COLORECTAL CANCER
     Dosage: DOSE: UNKNOWN
     Route: 065
     Dates: start: 20120802, end: 20120913

REACTIONS (1)
  - Toxicity to various agents [Unknown]
